FAERS Safety Report 15369390 (Version 3)
Quarter: 2020Q4

REPORT INFORMATION
  Report Type: Spontaneous
  Country: US (occurrence: US)
  Receive Date: 20180911
  Receipt Date: 20201202
  Transmission Date: 20210113
  Serious: No
  Sender: FDA-Public Use
  Company Number: PHEH2018US037097

PATIENT
  Sex: Male

DRUGS (1)
  1. CLINDAMYCIN. [Suspect]
     Active Substance: CLINDAMYCIN
     Indication: RASH
     Dosage: UNK
     Route: 061

REACTIONS (1)
  - Drug ineffective [Unknown]
